APPROVED DRUG PRODUCT: PAXIPAM
Active Ingredient: HALAZEPAM
Strength: 20MG
Dosage Form/Route: TABLET;ORAL
Application: N017736 | Product #003
Applicant: SCHERING CORP SUB SCHERING PLOUGH CORP
Approved: Approved Prior to Jan 1, 1982 | RLD: No | RS: No | Type: DISCN